FAERS Safety Report 12134910 (Version 1)
Quarter: 2016Q1

REPORT INFORMATION
  Report Type: Report from Study
  Country: US (occurrence: US)
  Receive Date: 20160301
  Receipt Date: 20160301
  Transmission Date: 20160526
  Serious: Yes (Other)
  Sender: FDA-Public Use
  Company Number: US-HLSUS-2016-US-000070

PATIENT

DRUGS (1)
  1. CLOZAPINE. [Suspect]
     Active Substance: CLOZAPINE

REACTIONS (9)
  - Encephalopathy [Unknown]
  - Hypertension [Unknown]
  - Septic shock [Unknown]
  - Dehydration [Unknown]
  - Leukocytosis [Unknown]
  - Ventricular tachycardia [Unknown]
  - Urinary tract infection [Unknown]
  - Hyperkalaemia [Unknown]
  - Renal failure [Unknown]
